FAERS Safety Report 9841937 (Version 1)
Quarter: 2013Q4

REPORT INFORMATION
  Report Type: Spontaneous
  Country: US (occurrence: None)
  Receive Date: 20131219
  Receipt Date: 20131219
  Transmission Date: 20140711
  Serious: Yes (Other)
  Sender: FDA-Public Use
  Company Number: 163-20785-13050939

PATIENT
  Age: 72 Year
  Sex: Male

DRUGS (11)
  1. THALOMID (THALIDOMIDE) (50 MILLIGRAM, CAPSULES) [Suspect]
     Indication: PROSTATE CANCER
     Route: 048
     Dates: start: 20120922
  2. REVLIMID (LENALIDOMIDE) (5 MILLIGRAM) [Suspect]
     Indication: PROSTATE CANCER
     Route: 048
     Dates: start: 20071120
  3. CALCIUM (CALCIUM) [Concomitant]
  4. CARVEDILOL (CARVEDILOL) [Concomitant]
  5. CENTRUM SILVER (CENTRUM SILVER) [Concomitant]
  6. CRESTOR (ROSUVASTATIN) [Concomitant]
  7. LOVAZA (OMEGA-3 MARINE TRIGLYCERIDES) [Concomitant]
  8. METFORMIN HCL (METFORMIN HYDROCHLORIDE) [Concomitant]
  9. PRADAXA (DABIGATRAN EXTEXILATE MESILATE) [Concomitant]
  10. RESVERATROL (RESVERATROL) [Concomitant]
  11. SPIRONOLACTONE (SPIRONOLACTONE) [Concomitant]

REACTIONS (2)
  - Heart rate increased [None]
  - Syncope [None]
